FAERS Safety Report 13860516 (Version 2)
Quarter: 2017Q4

REPORT INFORMATION
  Report Type: Report from Study
  Country: US (occurrence: US)
  Receive Date: 20170811
  Receipt Date: 20171024
  Transmission Date: 20180320
  Serious: Yes (Hospitalization, Other)
  Sender: FDA-Public Use
  Company Number: US-ARIAD-2016US006931

PATIENT
  Age: 57 Year
  Sex: Male

DRUGS (4)
  1. ICLUSIG [Suspect]
     Active Substance: PONATINIB
     Indication: ACUTE MYELOID LEUKAEMIA
     Dosage: 30 MG, QD
     Route: 048
     Dates: start: 20160902
  2. ICLUSIG [Suspect]
     Active Substance: PONATINIB
     Indication: CHRONIC MYELOID LEUKAEMIA
     Dosage: 30 MG, QD
     Route: 048
  3. ICLUSIG [Suspect]
     Active Substance: PONATINIB
     Dosage: 15 MG, QD
     Route: 048
  4. ICLUSIG [Suspect]
     Active Substance: PONATINIB
     Dosage: 30 MG, QD

REACTIONS (26)
  - Pericardial effusion [Unknown]
  - Off label use [Not Recovered/Not Resolved]
  - Renal cyst [Unknown]
  - Cardiomyopathy [Unknown]
  - Nausea [Unknown]
  - Chemotherapy [Unknown]
  - Chronic graft versus host disease [Unknown]
  - Oedema [Unknown]
  - Weight increased [Unknown]
  - Decreased appetite [Unknown]
  - Bone marrow transplant [Unknown]
  - Non-Hodgkin^s lymphoma [Unknown]
  - Chronic kidney disease [Unknown]
  - Atelectasis [Unknown]
  - Lung infiltration [Unknown]
  - Weight decreased [Unknown]
  - Aortic valve sclerosis [Unknown]
  - Rash [Unknown]
  - Neutropenia [Unknown]
  - Pneumonitis [Unknown]
  - Neurotoxicity [Unknown]
  - Hypoxia [Unknown]
  - Lung infection [Unknown]
  - Aortic dilatation [Unknown]
  - Left ventricular hypertrophy [Unknown]
  - Acute kidney injury [Unknown]

NARRATIVE: CASE EVENT DATE: 20170110
